FAERS Safety Report 12173757 (Version 1)
Quarter: 2016Q1

REPORT INFORMATION
  Report Type: Spontaneous
  Country: US (occurrence: None)
  Receive Date: 20160311
  Receipt Date: 20160311
  Transmission Date: 20160526
  Serious: Yes (Hospitalization, Disabling)
  Sender: FDA-Public Use
  Company Number: None

PATIENT
  Age: 17 Year
  Sex: Male
  Weight: 53 kg

DRUGS (1)
  1. NOVOLIN [Suspect]
     Active Substance: INSULIN HUMAN
     Indication: TYPE 1 DIABETES MELLITUS

REACTIONS (7)
  - Nasopharyngitis [None]
  - Glycosylated haemoglobin increased [None]
  - Diabetic ketoacidosis [None]
  - Visual impairment [None]
  - Dental caries [None]
  - Syncope [None]
  - Treatment noncompliance [None]

NARRATIVE: CASE EVENT DATE: 20160309
